FAERS Safety Report 21515951 (Version 1)
Quarter: 2022Q4

REPORT INFORMATION
  Report Type: Spontaneous
  Country: DE (occurrence: DE)
  Receive Date: 20221027
  Receipt Date: 20221027
  Transmission Date: 20230113
  Serious: Yes (Hospitalization)
  Sender: FDA-Public Use
  Company Number: DE-ADRED-08252-01

PATIENT
  Age: 52 Year
  Sex: Male

DRUGS (11)
  1. PACLITAXEL [Suspect]
     Active Substance: PACLITAXEL
     Indication: Product used for unknown indication
     Route: 065
  2. OXCARBAZEPINE [Suspect]
     Active Substance: OXCARBAZEPINE
     Indication: Product used for unknown indication
     Dosage: 300 MG, 1-0-2-0
     Route: 065
  3. METOPROLOL [Concomitant]
     Active Substance: METOPROLOL
     Indication: Product used for unknown indication
     Dosage: 47.5 MILLIGRAM DAILY; 1-0-1-0, UNIT DOSE : 23.75 MG, FREQUENCY ; 2 , FREQUENCY TIME : 1 DAYS,
  4. kalinor [Concomitant]
     Indication: Product used for unknown indication
     Dosage: 1 DOSAGE FORMS DAILY; 1-0-0-0, UNIT DOSE : 1 DOSAGE FORMS, FREQUENCY ; 1 , FREQUENCY TIME : 1 DAYS
  5. MCP - 1A Pharma [Concomitant]
     Indication: Product used for unknown indication
     Dosage: 30 MILLIGRAM DAILY; 1-1-1-0, UNIT DOSE AND STRENGTH  : 10 MG, FREQUENCY ; 3, FREQUENCY TIME : 1 DAYS
  6. ALBUTEROL\IPRATROPIUM BROMIDE [Concomitant]
     Active Substance: ALBUTEROL\IPRATROPIUM BROMIDE
     Indication: Product used for unknown indication
     Dosage: 4 DOSAGE FORMS DAILY; 1-1-1-1, UNIT DOSE : 1 DOSAGE FORMS, FREQUENCY ; 4 , FREQUENCY TIME : 1 DAYS,
  7. ESOMEPRAZOLE [Concomitant]
     Active Substance: ESOMEPRAZOLE
     Indication: Product used for unknown indication
     Dosage: 40 MILLIGRAM DAILY; 1-0-1-0, UNIT DOSE : 20 MG, FREQUENCY ; 2 , FREQUENCY TIME : 1 DAYS,
  8. PREGABALIN [Concomitant]
     Active Substance: PREGABALIN
     Indication: Product used for unknown indication
     Dosage: 50 MILLIGRAM DAILY; 0-0-2-0,UNIT DOSE : 25 MG, FREQUENCY ; 2 , FREQUENCY TIME : 1 DAYS,
  9. FENTANYL [Concomitant]
     Active Substance: FENTANYL
     Indication: Product used for unknown indication
     Dosage: 37.5 MICROGRAM, CHANGE EVERY THREE DAYS
     Route: 062
  10. Ambroxol 15 Juice - 1A Pharma [Concomitant]
     Indication: Product used for unknown indication
     Dosage: 15 DOSAGE FORMS DAILY; 15 MG/ML, 5-5-5-0, UNIT DOSE : 5 DOSAGE FORMS, FREQUENCY ; 3 , FREQUENCY TIME
  11. acc 600 [Concomitant]
     Indication: Product used for unknown indication
     Dosage: 1200 MILLIGRAM DAILY; 1-1-0-0, UNIT DOSE : 600 MG, FREQUENCY ; 2 , FREQUENCY TIME : 1 DAYS

REACTIONS (3)
  - General physical health deterioration [Unknown]
  - Petit mal epilepsy [Unknown]
  - Tremor [Unknown]
